FAERS Safety Report 18067418 (Version 2)
Quarter: 2020Q4

REPORT INFORMATION
  Report Type: Spontaneous
  Country: JP (occurrence: JP)
  Receive Date: 20200724
  Receipt Date: 20201208
  Transmission Date: 20210113
  Serious: Yes (Disabling)
  Sender: FDA-Public Use
  Company Number: JP-ALLERGAN-2026615US

PATIENT
  Sex: Male

DRUGS (6)
  1. TEARBALANCE [Concomitant]
     Active Substance: HYALURONATE SODIUM
  2. RINDERON [Concomitant]
     Indication: KERATITIS
     Route: 047
  3. ALPHAGAN P [Suspect]
     Active Substance: BRIMONIDINE TARTRATE
     Indication: GLAUCOMA
     Dosage: UNK
     Route: 047
  4. TAPCOM [Concomitant]
     Active Substance: TAFLUPROST\TIMOLOL
     Dosage: UNK
     Dates: start: 20150905
  5. GLANATEC [Concomitant]
     Active Substance: RIPASUDIL HYDROCHLORIDE DIHYDRATE
     Dosage: UNK
     Dates: start: 20180901
  6. AZOPT [Concomitant]
     Active Substance: BRINZOLAMIDE
     Dosage: UNK
     Dates: start: 20160304

REACTIONS (1)
  - Keratitis [Unknown]
